FAERS Safety Report 8975597 (Version 1)
Quarter: 2012Q4

REPORT INFORMATION
  Report Type: 
  Country: US (occurrence: US)
  Receive Date: 20121219
  Receipt Date: 20121219
  Transmission Date: 20130627
  Serious: No
  Sender: FDA-Public Use
  Company Number: US-PFIZER INC-2012322700

PATIENT
  Age: 80 Year
  Sex: Female
  Weight: 83.9 kg

DRUGS (4)
  1. LYRICA [Suspect]
     Indication: NEUROPATHIC PAIN
     Dosage: 75 mg, 2x/day
     Route: 048
     Dates: start: 201211, end: 2012
  2. LYRICA [Suspect]
     Dosage: 150 mg, 2x/day
     Route: 048
     Dates: start: 2012
  3. LYRICA [Suspect]
     Dosage: UNK, 2x/day
     Route: 048
     Dates: end: 201212
  4. PREDNISONE [Concomitant]
     Dosage: UNK

REACTIONS (3)
  - Feeling drunk [Recovered/Resolved]
  - Drug intolerance [Unknown]
  - Pain [Not Recovered/Not Resolved]
